FAERS Safety Report 11473200 (Version 1)
Quarter: 2015Q3

REPORT INFORMATION
  Report Type: Spontaneous
  Country: US (occurrence: US)
  Receive Date: 20150908
  Receipt Date: 20150908
  Transmission Date: 20151125
  Serious: Yes (Other)
  Sender: FDA-Public Use
  Company Number: US-JAZZ-2014-US-013409

PATIENT
  Age: 67 Year
  Sex: Female

DRUGS (6)
  1. TRILEPTAL [Concomitant]
     Active Substance: OXCARBAZEPINE
     Indication: FACIAL NEURALGIA
     Dosage: 150 MG, UNK
     Route: 048
  2. LOSARTAN POTASSIUM AND HYDROCHLOROTHIAZIDE [Concomitant]
     Active Substance: HYDROCHLOROTHIAZIDE\LOSARTAN POTASSIUM
     Indication: HYPERTENSION
     Route: 048
  3. POTASSIUM CHLORIDE. [Concomitant]
     Active Substance: POTASSIUM CHLORIDE
     Indication: HYPERTENSION
     Route: 048
  4. LEVOTHYROXINE SODIUM. [Concomitant]
     Active Substance: LEVOTHYROXINE SODIUM
     Indication: HYPOTHYROIDISM
     Dosage: 75 MG, UNK
     Route: 048
  5. XYREM [Suspect]
     Active Substance: SODIUM OXYBATE
     Indication: INSOMNIA
     Dosage: 2.25 G, BID
     Route: 048
     Dates: start: 20141009, end: 20141012
  6. XYREM [Suspect]
     Active Substance: SODIUM OXYBATE
     Indication: NARCOLEPSY
     Dosage: 3 G, BID
     Route: 048
     Dates: start: 20141013, end: 20141017

REACTIONS (16)
  - Dry skin [Not Recovered/Not Resolved]
  - Diarrhoea [Recovered/Resolved]
  - Intentional product use issue [Recovered/Resolved]
  - Muscular weakness [Unknown]
  - Pallor [Unknown]
  - Euphoric mood [Unknown]
  - Blood pressure increased [Not Recovered/Not Resolved]
  - Depression [Unknown]
  - Fatigue [Unknown]
  - Somnolence [Unknown]
  - Pollakiuria [Recovered/Resolved]
  - Skin disorder [Unknown]
  - Tremor [Not Recovered/Not Resolved]
  - Hypoaesthesia [Unknown]
  - Anxiety [Not Recovered/Not Resolved]
  - Psychotic disorder [Not Recovered/Not Resolved]

NARRATIVE: CASE EVENT DATE: 201410
